FAERS Safety Report 24723893 (Version 2)
Quarter: 2025Q1

REPORT INFORMATION
  Report Type: Spontaneous
  Country: US (occurrence: US)
  Receive Date: 20241211
  Receipt Date: 20250318
  Transmission Date: 20250409
  Serious: No
  Sender: THERATECHNOLOGIES
  Company Number: US-THERATECHNOLOGIES INC.-2024-THE-TES-000410

PATIENT

DRUGS (1)
  1. EGRIFTA SV [Suspect]
     Active Substance: TESAMORELIN ACETATE
     Indication: Lipodystrophy acquired
     Dosage: 1.4 MG, QD (DAILY)
     Route: 058
     Dates: start: 20240825

REACTIONS (3)
  - Wrong technique in product usage process [Unknown]
  - Incorrect dose administered [Unknown]
  - Therapeutic product effect incomplete [Unknown]

NARRATIVE: CASE EVENT DATE: 20241007
